FAERS Safety Report 19044221 (Version 1)
Quarter: 2021Q1

REPORT INFORMATION
  Report Type: Report from Study
  Country: US (occurrence: US)
  Receive Date: 20210323
  Receipt Date: 20210323
  Transmission Date: 20210420
  Serious: Yes (Hospitalization)
  Sender: FDA-Public Use
  Company Number: US-ROCHE-2789622

PATIENT
  Age: 77 Year
  Sex: Male
  Weight: 107.9 kg

DRUGS (2)
  1. CISPLATIN. [Suspect]
     Active Substance: CISPLATIN
     Indication: BLADDER TRANSITIONAL CELL CARCINOMA
     Route: 042
     Dates: start: 20200902
  2. ATEZOLIZUMAB. [Suspect]
     Active Substance: ATEZOLIZUMAB
     Indication: BLADDER TRANSITIONAL CELL CARCINOMA
     Route: 042
     Dates: start: 20200902

REACTIONS (4)
  - Blood creatinine increased [Unknown]
  - Urinary incontinence [Unknown]
  - Urinary tract infection [Unknown]
  - Dysuria [Unknown]

NARRATIVE: CASE EVENT DATE: 20200915
